FAERS Safety Report 4399488-4 (Version None)
Quarter: 2004Q3

REPORT INFORMATION
  Report Type: 
  Country: None (occurrence: None)
  Receive Date: 20040716
  Receipt Date: 20030610
  Transmission Date: 20050211
  Serious: Yes (Disabling)
  Sender: FDA-Public Use
  Company Number: US-ROCHE-340049

PATIENT
  Age: 49 Year
  Sex: Male
  Weight: 81.6 kg

DRUGS (6)
  1. PEGASYS [Suspect]
     Indication: HEPATITIS C
     Route: 065
     Dates: start: 20030606, end: 20030914
  2. PEGASYS [Suspect]
     Route: 065
     Dates: start: 20040702
  3. COPEGUS [Suspect]
     Indication: HEPATITIS C
     Route: 048
     Dates: start: 20030606, end: 20030921
  4. COPEGUS [Suspect]
     Route: 048
     Dates: start: 20040702
  5. ASPIRIN [Concomitant]
     Indication: PAIN
     Route: 048
  6. TYLENOL [Concomitant]
     Indication: PAIN

REACTIONS (32)
  - ABDOMINAL PAIN UPPER [None]
  - ACCIDENT [None]
  - ANXIETY [None]
  - ARTHRALGIA [None]
  - CHAPPED LIPS [None]
  - CHEST PAIN [None]
  - CHILLS [None]
  - CONFUSIONAL STATE [None]
  - DEPRESSION [None]
  - DIARRHOEA [None]
  - DYSPNOEA [None]
  - FATIGUE [None]
  - HAEMOGLOBIN DECREASED [None]
  - HEAD INJURY [None]
  - HYPOAESTHESIA ORAL [None]
  - INSOMNIA [None]
  - IRRITABILITY [None]
  - JUDGEMENT IMPAIRED [None]
  - LIP HAEMORRHAGE [None]
  - LOSS OF CONSCIOUSNESS [None]
  - MUSCULOSKELETAL DISCOMFORT [None]
  - NERVOUSNESS [None]
  - PAIN [None]
  - PALLOR [None]
  - PHARYNGOLARYNGEAL PAIN [None]
  - RASH [None]
  - RECTAL HAEMORRHAGE [None]
  - RED BLOOD CELL COUNT DECREASED [None]
  - STOMATITIS [None]
  - THROAT TIGHTNESS [None]
  - VOMITING [None]
  - WHITE BLOOD CELL COUNT DECREASED [None]
